FAERS Safety Report 24722367 (Version 1)
Quarter: 2024Q4

REPORT INFORMATION
  Report Type: Spontaneous
  Country: US (occurrence: US)
  Receive Date: 20241211
  Receipt Date: 20241211
  Transmission Date: 20250115
  Serious: No
  Sender: MYLAN
  Company Number: US-MYLANLABS-2024M1108914

PATIENT
  Sex: Female

DRUGS (1)
  1. LIDOCAINE PATCH [Suspect]
     Active Substance: LIDOCAINE
     Indication: Back pain
     Dosage: 5 PERCENT, BID (EVERY 12 HOURS)
     Route: 003

REACTIONS (2)
  - Off label use [Unknown]
  - Product adhesion issue [Unknown]
